FAERS Safety Report 16064934 (Version 2)
Quarter: 2020Q1

REPORT INFORMATION
  Report Type: Report from Study
  Country: None (occurrence: CA)
  Receive Date: 20190312
  Receipt Date: 20200127
  Transmission Date: 20200409
  Serious: Yes (Hospitalization)
  Sender: FDA-Public Use
  Company Number: CA-ABBVIE-19K-028-2696832-00

PATIENT
  Age: 57 Year
  Sex: Male

DRUGS (3)
  1. PREDNISONE. [Suspect]
     Active Substance: PREDNISONE
     Indication: PRODUCT USED FOR UNKNOWN INDICATION
     Route: 065
  2. HUMIRA [Suspect]
     Active Substance: ADALIMUMAB
     Indication: CROHN^S DISEASE
     Route: 058
     Dates: start: 20120501
  3. HUMIRA [Suspect]
     Active Substance: ADALIMUMAB
     Route: 058
     Dates: start: 2019, end: 201902

REACTIONS (23)
  - Gastrointestinal fistula [Unknown]
  - General physical health deterioration [Unknown]
  - Volvulus [Unknown]
  - Stoma site pain [Unknown]
  - Arthralgia [Not Recovered/Not Resolved]
  - Psoriasis [Not Recovered/Not Resolved]
  - Abdominal pain [Recovered/Resolved]
  - Mouth ulceration [Not Recovered/Not Resolved]
  - Abdominal pain [Recovered/Resolved]
  - Drug ineffective [Not Recovered/Not Resolved]
  - Fistula discharge [Unknown]
  - Fistula [Not Recovered/Not Resolved]
  - Abdominal hernia [Unknown]
  - Pain [Unknown]
  - Fistula discharge [Unknown]
  - Limb mass [Not Recovered/Not Resolved]
  - Precancerous skin lesion [Unknown]
  - Haemorrhage [Not Recovered/Not Resolved]
  - Fistula [Recovered/Resolved]
  - Weight decreased [Unknown]
  - Medical device site fistula [Unknown]
  - Skin lesion [Not Recovered/Not Resolved]
  - Abscess [Not Recovered/Not Resolved]

NARRATIVE: CASE EVENT DATE: 2018
